FAERS Safety Report 8948192 (Version 2)
Quarter: 2013Q1

REPORT INFORMATION
  Report Type: Spontaneous
  Country: JP (occurrence: None)
  Receive Date: 20121127
  Receipt Date: 20130128
  Transmission Date: 20140127
  Serious: Yes (Hospitalization, Other)
  Sender: FDA-Public Use
  Company Number: 2012-20003

PATIENT
  Age: 54 Year
  Sex: Female

DRUGS (4)
  1. OXALIPLATIN [Suspect]
     Indication: COLON CANCER METASTATIC
     Dosage: 4 CYCLES OF A 7TH ROUND OF CHEMOTHERAPY, UNKNOWN
  2. CAPECITABINE [Concomitant]
     Indication: COLON CANCER METASTATIC
     Dates: start: 201004
  3. FLUOROURACIL (FLUOROURACIL) [Suspect]
     Indication: COLON CANCER METASTATIC
     Dates: start: 200611, end: 200801
  4. CALCIUM FOLINATE (CALCIUM FOLINATE) [Suspect]
     Indication: COLON CANCER METASTATIC
     Dates: start: 200611, end: 200801

REACTIONS (8)
  - Autoimmune haemolytic anaemia [None]
  - Renal failure acute [None]
  - Haemodialysis [None]
  - Feeling abnormal [None]
  - Malaise [None]
  - Neutropenia [None]
  - Ascites [None]
  - General physical health deterioration [None]
